FAERS Safety Report 10208979 (Version 2)
Quarter: 2015Q3

REPORT INFORMATION
  Report Type: Spontaneous
  Country: DK (occurrence: DK)
  Receive Date: 20140530
  Receipt Date: 20150807
  Transmission Date: 20151125
  Serious: Yes (Hospitalization)
  Sender: FDA-Public Use
  Company Number: PHHY2014DK062131

PATIENT
  Age: 65 Year
  Sex: Female
  Weight: 73 kg

DRUGS (2)
  1. BIOCLAVID [Suspect]
     Active Substance: AMOXICILLIN\CLAVULANIC ACID
     Indication: LOCALISED INFECTION
     Dosage: 1 DF, TID
     Route: 048
     Dates: start: 20131106, end: 20131207
  2. BIOCLAVID [Suspect]
     Active Substance: AMOXICILLIN\CLAVULANIC ACID
     Dosage: STYRKE: 500 MG + 125 MG
     Route: 048
     Dates: start: 20131106, end: 20131207

REACTIONS (6)
  - Chromaturia [Recovered/Resolved]
  - Faeces pale [Recovered/Resolved]
  - Cholestasis [Recovered/Resolved]
  - Ocular icterus [Recovered/Resolved]
  - Pruritus [Recovered/Resolved]
  - Abdominal pain [Recovered/Resolved]

NARRATIVE: CASE EVENT DATE: 20131205
